FAERS Safety Report 8438056-1 (Version None)
Quarter: 2012Q2

REPORT INFORMATION
  Report Type: 
  Country: None (occurrence: None)
  Receive Date: 20120614
  Receipt Date: 20120604
  Transmission Date: 20120825
  Serious: Yes (Other)
  Sender: FDA-Public Use
  Company Number: US-BAYER-2012-058169

PATIENT

DRUGS (3)
  1. XARELTO [Interacting]
     Indication: HIP ARTHROPLASTY
     Dosage: 10 MG, UNK
     Route: 048
     Dates: start: 20120501
  2. PLAVIX [Interacting]
     Indication: PRODUCT USED FOR UNKNOWN INDICATION
     Route: 048
     Dates: end: 20120501
  3. ASPIRIN [Suspect]
     Indication: PRODUCT USED FOR UNKNOWN INDICATION
     Route: 048
     Dates: start: 20120501

REACTIONS (1)
  - WOUND HAEMORRHAGE [None]
